FAERS Safety Report 18737961 (Version 2)
Quarter: 2021Q1

REPORT INFORMATION
  Report Type: Report from Study
  Country: None (occurrence: US)
  Receive Date: 20210114
  Receipt Date: 20210227
  Transmission Date: 20210419
  Serious: Yes (Other)
  Sender: FDA-Public Use
  Company Number: US-ABBVIE-21K-163-3726013-00

PATIENT
  Sex: Female

DRUGS (1)
  1. HUMIRA [Suspect]
     Active Substance: ADALIMUMAB
     Indication: RHEUMATOID ARTHRITIS
     Route: 058
     Dates: start: 20201117

REACTIONS (12)
  - Musculoskeletal stiffness [Unknown]
  - Somnolence [Unknown]
  - Arthralgia [Unknown]
  - Joint swelling [Unknown]
  - Joint stiffness [Unknown]
  - Depression [Unknown]
  - Calcinosis [Unknown]
  - Pain [Unknown]
  - Fatigue [Unknown]
  - Anxiety [Recovering/Resolving]
  - Peripheral swelling [Unknown]
  - Headache [Unknown]
